FAERS Safety Report 9442863 (Version 2)
Quarter: 2013Q3

REPORT INFORMATION
  Report Type: Spontaneous
  Country: KR (occurrence: KR)
  Receive Date: 20130806
  Receipt Date: 20130819
  Transmission Date: 20140515
  Serious: Yes (Hospitalization)
  Sender: FDA-Public Use
  Company Number: KR-SPECTRUM PHARMACEUTICALS, INC.-13-F-KR-00212

PATIENT
  Age: 78 Year
  Sex: Male

DRUGS (2)
  1. FOLOTYN [Suspect]
     Indication: PERIPHERAL T-CELL LYMPHOMA UNSPECIFIED
     Dosage: 20MG/ML, WEEKLY
     Route: 030
     Dates: start: 20130712, end: 20130712
  2. FOLOTYN [Suspect]
     Dosage: 20MG/ML, WEEKLY
     Route: 042
     Dates: start: 20130705, end: 20130705

REACTIONS (3)
  - Septic shock [Not Recovered/Not Resolved]
  - Mucosal inflammation [Unknown]
  - Incorrect route of drug administration [Unknown]
